FAERS Safety Report 7429567-6 (Version None)
Quarter: 2011Q2

REPORT INFORMATION
  Report Type: 
  Country: None (occurrence: None)
  Receive Date: 20110421
  Receipt Date: 20110414
  Transmission Date: 20111010
  Serious: Yes (Hospitalization)
  Sender: FDA-Public Use
  Company Number: A0923003A

PATIENT
  Age: 52 Year
  Sex: Male

DRUGS (6)
  1. AVANDIA [Suspect]
     Dosage: 2MG TWICE PER DAY
     Route: 048
     Dates: start: 20060101, end: 20080101
  2. LISINOPRIL [Concomitant]
  3. AVANDAMET [Concomitant]
  4. METFORMIN [Concomitant]
  5. TOPROL-XL [Concomitant]
  6. CILOSTAZOL [Concomitant]

REACTIONS (5)
  - ABASIA [None]
  - TRANSIENT ISCHAEMIC ATTACK [None]
  - WALKING AID USER [None]
  - CEREBROVASCULAR ACCIDENT [None]
  - HYPOAESTHESIA [None]
